FAERS Safety Report 10950295 (Version 1)
Quarter: 2015Q1

REPORT INFORMATION
  Report Type: Spontaneous
  Country: JP (occurrence: JP)
  Receive Date: 20150324
  Receipt Date: 20150324
  Transmission Date: 20150721
  Serious: Yes (Hospitalization, Other)
  Sender: FDA-Public Use
  Company Number: JP-ASTRAZENECA-2015SE24774

PATIENT
  Age: 66 Year
  Sex: Male

DRUGS (3)
  1. EXENATIDE [Suspect]
     Active Substance: EXENATIDE
     Indication: TYPE 2 DIABETES MELLITUS
     Route: 058
     Dates: start: 20080519, end: 2012
  2. HUMULIN R [Concomitant]
     Active Substance: INSULIN HUMAN
     Indication: TYPE 2 DIABETES MELLITUS
     Dosage: 38 UNITS (14-14-10) DAILY
     Dates: start: 20081120
  3. UNSPECIFIED LONG ACTING INSULIN [Concomitant]

REACTIONS (4)
  - Bullous lung disease [Unknown]
  - Pancreatic carcinoma stage IV [Not Recovered/Not Resolved]
  - Pancreatitis acute [Unknown]
  - Metastases to liver [Unknown]

NARRATIVE: CASE EVENT DATE: 20081109
